FAERS Safety Report 7647774-4 (Version None)
Quarter: 2011Q3

REPORT INFORMATION
  Report Type: 
  Country: None (occurrence: None)
  Receive Date: 20110801
  Receipt Date: 20110722
  Transmission Date: 20111222
  Serious: Yes (Other)
  Sender: FDA-Public Use
  Company Number: CA-ROCHE-766889

PATIENT
  Sex: Female
  Weight: 56 kg

DRUGS (1)
  1. BEVACIZUMAB [Suspect]
     Indication: OVARIAN CANCER
     Dosage: FORM: INFUSION
     Route: 042
     Dates: start: 20110218, end: 20110429

REACTIONS (11)
  - ASPARTATE AMINOTRANSFERASE INCREASED [None]
  - SKIN ULCER [None]
  - DRUG INEFFECTIVE [None]
  - RED BLOOD CELL COUNT DECREASED [None]
  - BLOOD ALKALINE PHOSPHATASE INCREASED [None]
  - GAMMA-GLUTAMYLTRANSFERASE INCREASED [None]
  - RED CELL DISTRIBUTION WIDTH INCREASED [None]
  - PLATELET COUNT INCREASED [None]
  - CARBOHYDRATE ANTIGEN 125 INCREASED [None]
  - HAEMOGLOBIN DECREASED [None]
  - FATIGUE [None]
